FAERS Safety Report 5520510-3 (Version None)
Quarter: 2007Q4

REPORT INFORMATION
  Report Type: 
  Country: None (occurrence: None)
  Receive Date: 20071119
  Receipt Date: 20071105
  Transmission Date: 20080405
  Serious: Yes (Other)
  Sender: FDA-Public Use
  Company Number: US-PFIZER INC-2007093221

PATIENT
  Sex: Female

DRUGS (8)
  1. DILANTIN [Suspect]
     Indication: CONVULSION
  2. PHENYTOIN SUSPENSION [Suspect]
  3. LEVOXYL [Concomitant]
  4. CALCIUM [Concomitant]
  5. VITAMIN D [Concomitant]
  6. DEPAKOTE [Concomitant]
  7. CELONTIN [Concomitant]
  8. QUINAPRIL HCL [Concomitant]

REACTIONS (6)
  - CONVULSION [None]
  - DIZZINESS [None]
  - FEELING ABNORMAL [None]
  - HYPOREFLEXIA [None]
  - NEOPLASM MALIGNANT [None]
  - VERTIGO [None]
